FAERS Safety Report 6121919-X (Version None)
Quarter: 2009Q1

REPORT INFORMATION
  Report Type: 
  Country: None (occurrence: None)
  Receive Date: 20090313
  Receipt Date: 20090305
  Transmission Date: 20090719
  Serious: Yes (Hospitalization)
  Sender: FDA-Public Use
  Company Number: 2009SP002110

PATIENT
  Age: 45 Year
  Sex: Female

DRUGS (1)
  1. NOXAFIL [Suspect]
     Indication: PROPHYLAXIS

REACTIONS (4)
  - DRUG INEFFECTIVE [None]
  - LUNG OPERATION [None]
  - MUCORMYCOSIS [None]
  - POST PROCEDURAL INFECTION [None]
